FAERS Safety Report 18987324 (Version 1)
Quarter: 2021Q1

REPORT INFORMATION
  Report Type: Other
  Country: CN (occurrence: CN)
  Receive Date: 20210309
  Receipt Date: 20210309
  Transmission Date: 20210420
  Serious: Yes (Death, Other)
  Sender: FDA-Public Use
  Company Number: CN-ROCHE-2114418

PATIENT
  Sex: Female

DRUGS (3)
  1. LAPATINIB [Suspect]
     Active Substance: LAPATINIB
     Indication: BREAST CANCER METASTATIC
     Route: 065
  2. CAPECITABINE. [Suspect]
     Active Substance: CAPECITABINE
     Indication: BREAST CANCER METASTATIC
     Route: 065
  3. PYROTINIB [Suspect]
     Active Substance: PYROTINIB
     Indication: BREAST CANCER METASTATIC
     Route: 048

REACTIONS (24)
  - Haemoglobin decreased [Unknown]
  - Neutrophil count decreased [Unknown]
  - White blood cell count decreased [Unknown]
  - Vomiting [Unknown]
  - Anaemia [Unknown]
  - Nausea [Unknown]
  - Aspartate aminotransferase increased [Unknown]
  - Stomatitis [Unknown]
  - Blood bilirubin increased [Unknown]
  - Weight decreased [Unknown]
  - Blood bilirubin unconjugated increased [Unknown]
  - Blood alkaline phosphatase increased [Unknown]
  - Diarrhoea [Unknown]
  - Hyperlipidaemia [Unknown]
  - Decreased appetite [Unknown]
  - Hypokalaemia [Unknown]
  - Upper respiratory tract infection [Unknown]
  - Gamma-glutamyltransferase increased [Unknown]
  - Death [Fatal]
  - Hypertriglyceridaemia [Unknown]
  - Palmar-plantar erythrodysaesthesia syndrome [Unknown]
  - Bilirubin conjugated increased [Unknown]
  - Alanine aminotransferase increased [Unknown]
  - Lymphocyte count decreased [Unknown]
